FAERS Safety Report 23119289 (Version 1)
Quarter: 2023Q4

REPORT INFORMATION
  Report Type: Spontaneous
  Country: GB (occurrence: GB)
  Receive Date: 20231028
  Receipt Date: 20231028
  Transmission Date: 20240109
  Serious: Yes (Death, Hospitalization)
  Sender: FDA-Public Use
  Company Number: GB-NOVITIUMPHARMA-2023GBNVP01841

PATIENT
  Age: 73 Year
  Sex: Male

DRUGS (6)
  1. PYRIDOSTIGMINE BROMIDE [Suspect]
     Active Substance: PYRIDOSTIGMINE BROMIDE
     Indication: Myasthenia gravis
  2. METHYLPREDNISOLONE [Concomitant]
     Active Substance: METHYLPREDNISOLONE
     Indication: Immunosuppression
  3. Immunoglobulin [Concomitant]
     Indication: Immunosuppression
     Route: 042
  4. MYCOPHENOLATE MOFETIL [Concomitant]
     Active Substance: MYCOPHENOLATE MOFETIL
     Indication: Immunosuppression
  5. ABATACEPT [Concomitant]
     Active Substance: ABATACEPT
     Indication: Immunosuppression
     Dosage: 750 MG *1
  6. RITUXIMAB [Concomitant]
     Active Substance: RITUXIMAB
     Indication: Immunosuppression
     Dosage: 1 G * 2 DOSES

REACTIONS (1)
  - Drug ineffective [Fatal]
